FAERS Safety Report 5237019-7 (Version None)
Quarter: 2007Q1

REPORT INFORMATION
  Report Type: 
  Country: None (occurrence: None)
  Receive Date: 20061208
  Receipt Date: 20050222
  Transmission Date: 20070707
  Serious: Yes (Other)
  Sender: FDA-Public Use
  Company Number: 2005UW02890

PATIENT
  Age: 67 Year
  Sex: Female
  Weight: 54.43 kg

DRUGS (4)
  1. CRESTOR [Suspect]
     Indication: BLOOD TRIGLYCERIDES INCREASED
     Dates: start: 20050216
  2. PREMARIN [Concomitant]
  3. VASOTEC [Concomitant]
  4. TRIAMTERENE [Concomitant]

REACTIONS (4)
  - ABDOMINAL PAIN LOWER [None]
  - DIARRHOEA [None]
  - FLATULENCE [None]
  - HAEMORRHOIDS [None]
